FAERS Safety Report 17590023 (Version 1)
Quarter: 2020Q1

REPORT INFORMATION
  Report Type: Spontaneous
  Country: TW (occurrence: TW)
  Receive Date: 20200327
  Receipt Date: 20200327
  Transmission Date: 20200409
  Serious: Yes (Other)
  Sender: FDA-Public Use
  Company Number: TW-SUN PHARMACEUTICAL INDUSTRIES LTD-2020R1-241699

PATIENT
  Age: 68 Year
  Sex: Male

DRUGS (4)
  1. URSODEOXYCHOLIC ACID [Suspect]
     Active Substance: URSODIOL
     Indication: JAUNDICE CHOLESTATIC
     Dosage: 400 MILLIGRAM, TID
     Route: 048
  2. CHOLESTYRAMINE. [Suspect]
     Active Substance: CHOLESTYRAMINE
     Indication: JAUNDICE CHOLESTATIC
     Dosage: 4 GRAM, TID
     Route: 065
  3. CEFAZOLIN [Suspect]
     Active Substance: CEFAZOLIN
     Indication: JAUNDICE CHOLESTATIC
     Dosage: UNK
     Route: 042
  4. MEPERIDINE [Suspect]
     Active Substance: MEPERIDINE
     Indication: JAUNDICE CHOLESTATIC
     Dosage: UNK
     Route: 030

REACTIONS (3)
  - Cholestasis [Recovering/Resolving]
  - Pneumobilia [Recovering/Resolving]
  - Pruritus [Recovering/Resolving]
